FAERS Safety Report 8818331 (Version 1)
Quarter: 2012Q4

REPORT INFORMATION
  Report Type: 
  Country: FR (occurrence: FR)
  Receive Date: 20121001
  Receipt Date: 20121001
  Transmission Date: 20130627
  Serious: Yes (Life-Threatening, Hospitalization)
  Sender: FDA-Public Use
  Company Number: FR-ASTRAZENECA-2012SE75015

PATIENT
  Age: 61 Year
  Sex: Female

DRUGS (9)
  1. INEXIUM [Suspect]
     Route: 048
  2. LEPTICUR [Suspect]
     Route: 048
  3. TERCIAN [Suspect]
     Route: 065
  4. RISPERDAL [Suspect]
     Route: 065
  5. HALDOL [Suspect]
     Route: 065
  6. PREVISCAN [Suspect]
     Dosage: 3/4 DF
     Route: 048
  7. VALSARTAN [Suspect]
     Route: 048
  8. ATARAX [Suspect]
     Route: 065
  9. LOXEN LP [Suspect]
     Route: 048

REACTIONS (11)
  - Intestinal obstruction [Recovered/Resolved with Sequelae]
  - Intestinal ischaemia [Recovered/Resolved with Sequelae]
  - Hypotension [Recovered/Resolved]
  - Hyperthermia [Recovered/Resolved]
  - Oxygen saturation decreased [Recovered/Resolved]
  - Haemodynamic instability [Unknown]
  - Anuria [Unknown]
  - Hyperkalaemia [Unknown]
  - Acidosis [Unknown]
  - Vomiting [Unknown]
  - Constipation [Unknown]
